FAERS Safety Report 9627164 (Version 1)
Quarter: 2013Q4

REPORT INFORMATION
  Report Type: Spontaneous
  Country: GB (occurrence: GB)
  Receive Date: 20131016
  Receipt Date: 20131016
  Transmission Date: 20140711
  Serious: Yes (Other)
  Sender: FDA-Public Use
  Company Number: GB-ACTAVIS-2013-18770

PATIENT
  Age: 42 Year
  Sex: Female

DRUGS (1)
  1. ACYCLOVIR (UNKNOWN) [Suspect]
     Indication: ORAL HERPES
     Dosage: 200 MG, UNKNOWN
     Route: 048
     Dates: start: 20130910, end: 20130914

REACTIONS (1)
  - Palpitations [Recovering/Resolving]
